FAERS Safety Report 5879846-9 (Version None)
Quarter: 2008Q3

REPORT INFORMATION
  Report Type: 
  Country: None (occurrence: None)
  Receive Date: 20080912
  Receipt Date: 20080902
  Transmission Date: 20090109
  Serious: Yes (Hospitalization)
  Sender: FDA-Public Use
  Company Number: JP-ELI_LILLY_AND_COMPANY-JP200805004110

PATIENT
  Sex: Female

DRUGS (2)
  1. EVISTA [Suspect]
     Route: 048
  2. ALFAROL [Concomitant]

REACTIONS (1)
  - HYPOKALAEMIA [None]
